FAERS Safety Report 10176719 (Version 1)
Quarter: 2014Q2

REPORT INFORMATION
  Report Type: Report from Study
  Country: CA (occurrence: CA)
  Receive Date: 20140516
  Receipt Date: 20140516
  Transmission Date: 20141212
  Serious: Yes (Other)
  Sender: FDA-Public Use
  Company Number: CA-BRISTOL-MYERS SQUIBB COMPANY-20732434

PATIENT
  Age: 55 Year
  Sex: Female

DRUGS (14)
  1. ORENCIA [Suspect]
     Indication: RHEUMATOID ARTHRITIS
     Dosage: 1DF=750 UNITS NOS?LAST DOSE ADMN:08MAY14
     Dates: start: 20061116
  2. METHOTREXATE [Concomitant]
  3. CELEBREX [Concomitant]
  4. GABAPENTIN [Concomitant]
  5. DOCUSATE [Concomitant]
  6. LORAZEPAM [Concomitant]
  7. TRAZODONE HCL [Concomitant]
  8. SENNOSIDES [Concomitant]
  9. FOLIC ACID [Concomitant]
  10. DETROL [Concomitant]
  11. FLOVENT [Concomitant]
  12. VENTOLIN [Concomitant]
  13. NASONEX [Concomitant]
  14. AMITRIPTYLINE [Concomitant]

REACTIONS (1)
  - Bone disorder [Unknown]
